FAERS Safety Report 19877516 (Version 1)
Quarter: 2021Q3

REPORT INFORMATION
  Report Type: Spontaneous
  Country: ES (occurrence: ES)
  Receive Date: 20210924
  Receipt Date: 20210924
  Transmission Date: 20211014
  Serious: Yes (Hospitalization)
  Sender: FDA-Public Use
  Company Number: ES-DRREDDYS-LIT/SPN/21/0140404

PATIENT
  Age: 51 Year
  Sex: Female

DRUGS (3)
  1. BORTEZOMIB. [Suspect]
     Active Substance: BORTEZOMIB
     Indication: B-CELL LYMPHOMA
     Dosage: FIRST DOSE
     Dates: start: 2019
  2. BORTEZOMIB. [Suspect]
     Active Substance: BORTEZOMIB
     Indication: TUBULOINTERSTITIAL NEPHRITIS
  3. BORTEZOMIB. [Suspect]
     Active Substance: BORTEZOMIB
     Indication: PLASMA CELL MYELOMA

REACTIONS (3)
  - Product use in unapproved indication [Unknown]
  - Pyelonephritis acute [Unknown]
  - Posterior reversible encephalopathy syndrome [Unknown]
